FAERS Safety Report 11069027 (Version 1)
Quarter: 2015Q2

REPORT INFORMATION
  Report Type: Spontaneous
  Country: None (occurrence: None)
  Receive Date: 20150424
  Receipt Date: 20150424
  Transmission Date: 20150821
  Serious: Yes (Hospitalization)
  Sender: FDA-Public Use
  Company Number: None

PATIENT
  Age: 85 Year
  Sex: Male

DRUGS (7)
  1. LOVAZA [Concomitant]
     Active Substance: OMEGA-3-ACID ETHYL ESTERS
  2. PRO-STAT PROTEIN LIQUID [Concomitant]
  3. BOTOX [Suspect]
     Active Substance: ONABOTULINUMTOXINA
     Indication: MUSCLE SPASTICITY
     Dosage: INJECTION, APPROX. EVERY 6 MON
     Dates: start: 20150310
  4. CRESTOR [Concomitant]
     Active Substance: ROSUVASTATIN CALCIUM
  5. BOTOX [Suspect]
     Active Substance: ONABOTULINUMTOXINA
     Indication: MUSCLE CONTRACTIONS INVOLUNTARY
     Dosage: INJECTION, APPROX. EVERY 6 MON
     Dates: start: 20150310
  6. GENERIC WARFARIN [Concomitant]
  7. VITAMIN D [Concomitant]
     Active Substance: CHOLECALCIFEROL

REACTIONS (3)
  - Dysarthria [None]
  - Device misuse [None]
  - Seizure [None]

NARRATIVE: CASE EVENT DATE: 20150414
